FAERS Safety Report 15740753 (Version 2)
Quarter: 2019Q1

REPORT INFORMATION
  Report Type: Spontaneous
  Country: US (occurrence: US)
  Receive Date: 20181219
  Receipt Date: 20190107
  Transmission Date: 20190417
  Serious: No
  Sender: FDA-Public Use
  Company Number: US-GILEAD-2018-0380791

PATIENT
  Age: 50 Year
  Sex: Male
  Weight: 85.3 kg

DRUGS (1)
  1. COMPLERA [Suspect]
     Active Substance: EMTRICITABINE\RILPIVIRINE HYDROCHLORIDE\TENOFOVIR DISOPROXIL FUMARATE
     Indication: PRODUCT USED FOR UNKNOWN INDICATION
     Dosage: 200 MG/ 25 MG/ 300 MG , QD
     Route: 048

REACTIONS (2)
  - Product dispensing error [Recovered/Resolved]
  - Intercepted wrong patient selected [Recovered/Resolved]

NARRATIVE: CASE EVENT DATE: 20181217
